FAERS Safety Report 8714128 (Version 2)
Quarter: 2012Q4

REPORT INFORMATION
  Report Type: Report from Study
  Country: US (occurrence: US)
  Receive Date: 20120808
  Receipt Date: 20120910
  Transmission Date: 20130627
  Serious: Yes (Hospitalization)
  Sender: FDA-Public Use
  Company Number: US-ABBOTT-12P-163-0960076-00

PATIENT
  Age: 72 Year
  Sex: Male

DRUGS (8)
  1. HUMIRA 40 MG/0.8 ML PEN [Suspect]
     Indication: CROHN^S DISEASE
     Dosage: Loading doses
     Route: 058
     Dates: start: 20120706, end: 20120706
  2. HUMIRA 40 MG/0.8 ML PEN [Suspect]
     Dosage: second loading dose
     Route: 058
     Dates: start: 20120720, end: 20120720
  3. HUMIRA 40 MG/0.8 ML PEN [Suspect]
     Route: 058
  4. PENTASA [Concomitant]
     Indication: PRODUCT USED FOR UNKNOWN INDICATION
     Dosage: 4 tabs TID
  5. PURINETHOL [Concomitant]
     Indication: PRODUCT USED FOR UNKNOWN INDICATION
  6. ENTOCORT EC [Concomitant]
     Indication: PRODUCT USED FOR UNKNOWN INDICATION
  7. DICYCLOMINE [Concomitant]
     Indication: ABDOMINAL PAIN UPPER
     Dosage: Every day
  8. MERCAPTOPURINE [Concomitant]
     Indication: PRODUCT USED FOR UNKNOWN INDICATION

REACTIONS (3)
  - Intestinal obstruction [Recovering/Resolving]
  - Asthenia [Not Recovered/Not Resolved]
  - Gastric disorder [Not Recovered/Not Resolved]
